FAERS Safety Report 16156514 (Version 1)
Quarter: 2019Q2

REPORT INFORMATION
  Report Type: Spontaneous
  Country: DE (occurrence: DE)
  Receive Date: 20190404
  Receipt Date: 20190404
  Transmission Date: 20190711
  Serious: Yes (Congenital Anomaly, Other)
  Sender: FDA-Public Use
  Company Number: DE-ACCORD-117900

PATIENT
  Sex: Male
  Weight: 2.4 kg

DRUGS (3)
  1. CITALOPRAM [Concomitant]
     Active Substance: CITALOPRAM HYDROBROMIDE
     Indication: DEPRESSION
     Dosage: 30 MG-0-0
     Route: 064
     Dates: start: 2016
  2. TOPIRAMATE. [Suspect]
     Active Substance: TOPIRAMATE
     Indication: EPILEPSY
     Dosage: 50 MG-0-50 MG
     Route: 064
     Dates: start: 2017
  3. LAMOTRIGINE. [Concomitant]
     Active Substance: LAMOTRIGINE
     Indication: EPILEPSY
     Dosage: 225 MG-0-250 MG
     Route: 064
     Dates: start: 2015

REACTIONS (4)
  - Skeletal dysplasia [Not Recovered/Not Resolved]
  - Foetal exposure during pregnancy [Unknown]
  - Teratogenicity [Not Recovered/Not Resolved]
  - Congenital hand malformation [Not Recovered/Not Resolved]

NARRATIVE: CASE EVENT DATE: 20190203
